FAERS Safety Report 8990748 (Version 2)
Quarter: 2013Q1

REPORT INFORMATION
  Report Type: Report from Study
  Country: GB (occurrence: GB)
  Receive Date: 20121228
  Receipt Date: 20130116
  Transmission Date: 20140127
  Serious: Yes (Hospitalization)
  Sender: FDA-Public Use
  Company Number: GB-ROCHE-1170736

PATIENT
  Age: 60 Year
  Sex: Female
  Weight: 67.8 kg

DRUGS (5)
  1. TRASTUZUMAB [Suspect]
     Indication: BREAST CANCER
     Dosage: DATE OF LAST DOSE PRIOR TO SAE: 06/DEC/2012
     Route: 042
     Dates: start: 20121206
  2. PARACETAMOL [Concomitant]
     Route: 065
     Dates: start: 201211
  3. FILGRASTIM [Concomitant]
     Dosage: TOTAL DAILY DOSE: 30 MEGA UNITS
     Route: 065
     Dates: start: 20121210, end: 20121214
  4. DOMPERIDONE [Concomitant]
     Route: 065
     Dates: start: 201212
  5. PLACEBO [Suspect]
     Indication: BREAST CANCER
     Dosage: DATE OF LAST DOSE PRIOR TO SAE: 06/DEC/2012
     Route: 042
     Dates: start: 20121206

REACTIONS (2)
  - Chest pain [Recovered/Resolved]
  - Back pain [Recovered/Resolved]
